FAERS Safety Report 8240284-5 (Version None)
Quarter: 2012Q1

REPORT INFORMATION
  Report Type: 
  Country: None (occurrence: None)
  Receive Date: 20120328
  Receipt Date: 20120328
  Transmission Date: 20120608
  Serious: Yes (Hospitalization)
  Sender: FDA-Public Use
  Company Number: None

PATIENT
  Sex: Female
  Weight: 101 kg

DRUGS (1)
  1. ISOSULFAN BLUE [Suspect]

REACTIONS (5)
  - HYPOTENSION [None]
  - CHROMATURIA [None]
  - CYANOSIS [None]
  - RASH [None]
  - SKIN DISCOLOURATION [None]
